FAERS Safety Report 7156324-0 (Version None)
Quarter: 2010Q4

REPORT INFORMATION
  Report Type: 
  Country: None (occurrence: None)
  Receive Date: 20101130
  Receipt Date: 20101115
  Transmission Date: 20110411
  Serious: Yes (Death)
  Sender: FDA-Public Use
  Company Number: PIR#1011035

PATIENT
  Age: 38 Year
  Sex: Female
  Weight: 45 kg

DRUGS (1)
  1. METRONIDAZOLE [Suspect]

REACTIONS (4)
  - COMA [None]
  - DYSARTHRIA [None]
  - ENCEPHALOPATHY [None]
  - SOMNOLENCE [None]
